FAERS Safety Report 14801309 (Version 1)
Quarter: 2018Q2

REPORT INFORMATION
  Report Type: Report from Study
  Country: IN (occurrence: IN)
  Receive Date: 20180424
  Receipt Date: 20180424
  Transmission Date: 20180711
  Serious: Yes (Hospitalization, Other)
  Sender: FDA-Public Use
  Company Number: PHHY2017IN200996

PATIENT
  Age: 75 Year
  Sex: Male
  Weight: 70 kg

DRUGS (1)
  1. VYMADA [Suspect]
     Active Substance: SACUBITRIL\VALSARTAN
     Indication: CARDIAC FAILURE
     Dosage: 50 MG, QD
     Route: 048

REACTIONS (7)
  - Nephrolithiasis [Not Recovered/Not Resolved]
  - Drug prescribing error [Unknown]
  - Pruritus generalised [Not Recovered/Not Resolved]
  - Dyspnoea [Not Recovered/Not Resolved]
  - Scratch [Not Recovered/Not Resolved]
  - Inappropriate schedule of drug administration [Unknown]
  - Calculus bladder [Not Recovered/Not Resolved]
